FAERS Safety Report 7590449-0 (Version None)
Quarter: 2011Q2

REPORT INFORMATION
  Report Type: 
  Country: None (occurrence: None)
  Receive Date: 20110627
  Receipt Date: 20110514
  Transmission Date: 20111010
  Serious: Yes (Other)
  Sender: FDA-Public Use
  Company Number: 1000021731

PATIENT
  Sex: Male

DRUGS (2)
  1. CITALOPRAM HYDROBROMIDE [Suspect]
     Dosage: 30 MG (30 MG, 1 IN 1 D)
  2. ANXIOLYTIC (ANXIOLYTICS) (ANXIOLYTIC) [Concomitant]

REACTIONS (2)
  - ROAD TRAFFIC ACCIDENT [None]
  - DRUG WITHDRAWAL SYNDROME [None]
